FAERS Safety Report 5828109-6 (Version None)
Quarter: 2008Q3

REPORT INFORMATION
  Report Type: 
  Country: None (occurrence: None)
  Receive Date: 20080729
  Receipt Date: 20080729
  Transmission Date: 20090109
  Serious: Yes (Death, Hospitalization)
  Sender: FDA-Public Use
  Company Number: None

PATIENT
  Sex: Female
  Weight: 85.64 kg

DRUGS (2)
  1. CARBOPLATIN [Suspect]
     Dosage: 715 MG
     Dates: end: 20080702
  2. TAXOL [Suspect]
     Dosage: 350 MG
     Dates: end: 20080702

REACTIONS (16)
  - ANAEMIA [None]
  - ASCITES [None]
  - DEEP VEIN THROMBOSIS [None]
  - DISEASE PROGRESSION [None]
  - GASTRIC DISORDER [None]
  - GASTROINTESTINAL HAEMORRHAGE [None]
  - HYPOKALAEMIA [None]
  - HYPOTENSION [None]
  - MALLORY-WEISS SYNDROME [None]
  - MENTAL STATUS CHANGES [None]
  - OVARIAN CANCER [None]
  - PLATELET COUNT DECREASED [None]
  - PLEURAL EFFUSION [None]
  - URINE OUTPUT DECREASED [None]
  - UROSEPSIS [None]
  - WHITE BLOOD CELL COUNT DECREASED [None]
